FAERS Safety Report 20616945 (Version 1)
Quarter: 2022Q1

REPORT INFORMATION
  Report Type: Spontaneous
  Country: US (occurrence: US)
  Receive Date: 20220321
  Receipt Date: 20220321
  Transmission Date: 20220423
  Serious: Yes (Hospitalization)
  Sender: FDA-Public Use
  Company Number: US-BAYER-2022A037931

PATIENT
  Age: 68 Year
  Sex: Female

DRUGS (5)
  1. ADEMPAS [Suspect]
     Active Substance: RIOCIGUAT
     Indication: Pulmonary hypertension
     Dosage: 1.5 MG, TID
     Route: 048
     Dates: start: 20211126
  2. LASIX [Concomitant]
     Active Substance: FUROSEMIDE
     Dosage: 120 MG, QD
  3. LASIX [Concomitant]
     Active Substance: FUROSEMIDE
     Dosage: 80 MG, BID
     Route: 042
  4. METOLAZONE [Concomitant]
     Active Substance: METOLAZONE
  5. SPIRONOLACTONE [Concomitant]
     Active Substance: SPIRONOLACTONE

REACTIONS (4)
  - Dyspnoea exertional [None]
  - Peripheral swelling [None]
  - Weight increased [None]
  - Oedema peripheral [Not Recovered/Not Resolved]

NARRATIVE: CASE EVENT DATE: 20220310
